FAERS Safety Report 7548675-2 (Version None)
Quarter: 2011Q2

REPORT INFORMATION
  Report Type: 
  Country: None (occurrence: None)
  Receive Date: 20110615
  Receipt Date: 20110610
  Transmission Date: 20111010
  Serious: Yes (Other)
  Sender: FDA-Public Use
  Company Number: US-SANOFI-AVENTIS-2011SA037511

PATIENT
  Age: 75 Year
  Sex: Male

DRUGS (5)
  1. MULTAQ [Suspect]
     Indication: ATRIAL FIBRILLATION
     Route: 048
     Dates: start: 20110501, end: 20110601
  2. LOSARTAN POTASSIUM [Concomitant]
  3. DILTIAZEM [Concomitant]
  4. DIGOXIN [Concomitant]
  5. DABIGATRAN ETEXILATE [Concomitant]

REACTIONS (3)
  - TACHYPHRENIA [None]
  - ATRIAL FIBRILLATION [None]
  - INSOMNIA [None]
